FAERS Safety Report 15686132 (Version 1)
Quarter: 2018Q4

REPORT INFORMATION
  Report Type: Report from Study
  Country: IT (occurrence: IT)
  Receive Date: 20181204
  Receipt Date: 20181204
  Transmission Date: 20190205
  Serious: Yes (Other)
  Sender: FDA-Public Use
  Company Number: IT-TEVA-2018-IT-981573

PATIENT
  Age: 46 Year
  Sex: Female

DRUGS (7)
  1. DOSTINEX 0,5 MG COMPRESSE [Concomitant]
  2. QUETIAPINE. [Suspect]
     Active Substance: QUETIAPINE
     Indication: ATTENTION-SEEKING BEHAVIOUR
     Route: 048
     Dates: start: 20181103, end: 20181103
  3. TRITTICO 150 MG COMPRESSE A RILASCIO PROLUNGATO [Concomitant]
     Active Substance: TRAZODONE HYDROCHLORIDE
     Dosage: 150 MILLIGRAM DAILY;
     Route: 048
  4. PREGABALIN. [Concomitant]
     Active Substance: PREGABALIN
     Dosage: 150 MILLIGRAM DAILY;
  5. XANAX [Suspect]
     Active Substance: ALPRAZOLAM
     Indication: ATTENTION-SEEKING BEHAVIOUR
     Route: 048
     Dates: start: 20181103, end: 20181103
  6. GABAPENTIN. [Concomitant]
     Active Substance: GABAPENTIN
     Dosage: 900 MILLIGRAM DAILY;
  7. DIAZEPAM. [Concomitant]
     Active Substance: DIAZEPAM
     Dosage: 6 MILLIGRAM DAILY;

REACTIONS (4)
  - Sopor [Recovering/Resolving]
  - Depressed level of consciousness [Recovering/Resolving]
  - Drug abuse [Recovering/Resolving]
  - Hypokinesia [Recovering/Resolving]

NARRATIVE: CASE EVENT DATE: 20181103
